FAERS Safety Report 9267553 (Version 1)
Quarter: 2013Q2

REPORT INFORMATION
  Report Type: Spontaneous
  Country: GB (occurrence: GB)
  Receive Date: 20130502
  Receipt Date: 20130502
  Transmission Date: 20140414
  Serious: Yes (Other)
  Sender: FDA-Public Use
  Company Number: GB-GLAXOSMITHKLINE-B0887108A

PATIENT
  Age: 67 Year
  Sex: Female

DRUGS (4)
  1. VOTRIENT [Suspect]
     Indication: METASTATIC RENAL CELL CARCINOMA
     Dosage: 600MG PER DAY
     Route: 048
     Dates: start: 20130314, end: 20130321
  2. AMLODIPINE [Concomitant]
  3. LISINOPRIL [Concomitant]
  4. CEPHALEXIN [Concomitant]

REACTIONS (2)
  - Liver function test abnormal [Recovering/Resolving]
  - Condition aggravated [Unknown]
